FAERS Safety Report 9831226 (Version 2)
Quarter: 2014Q4

REPORT INFORMATION
  Report Type: Report from Study
  Country: US (occurrence: US)
  Receive Date: 20140121
  Receipt Date: 20141027
  Transmission Date: 20150529
  Serious: Yes (Other)
  Sender: FDA-Public Use
  Company Number: US-BIOGENIDEC-2013BI056128

PATIENT
  Sex: Female

DRUGS (2)
  1. TYSABRI [Suspect]
     Active Substance: NATALIZUMAB
     Indication: EXPOSURE VIA FATHER
     Dates: start: 20110805
  2. TYSABRI [Suspect]
     Active Substance: NATALIZUMAB
     Indication: EXPOSURE VIA FATHER
     Dates: start: 20060925, end: 20110509

REACTIONS (3)
  - Gestational diabetes [Unknown]
  - Foetal distress syndrome [Unknown]
  - Prolonged labour [Recovered/Resolved]

NARRATIVE: CASE EVENT DATE: 20131205
